FAERS Safety Report 21762702 (Version 2)
Quarter: 2023Q1

REPORT INFORMATION
  Report Type: Report from Study
  Country: US (occurrence: US)
  Receive Date: 20221221
  Receipt Date: 20230324
  Transmission Date: 20230418
  Serious: Yes (Disabling)
  Sender: FDA-Public Use
  Company Number: US-ABBVIE-4245032

PATIENT
  Age: 68 Year
  Sex: Male
  Weight: 93 kg

DRUGS (10)
  1. IMBRUVICA [Suspect]
     Active Substance: IBRUTINIB
     Indication: Waldenstrom^s macroglobulinaemia
     Dosage: TIME INTERVAL: 0.33333333 DAYS: FORM STRENGTH: 140 MILLIGRAM
     Route: 048
     Dates: start: 20220331
  2. LOSARTAN POTASSIUM [Concomitant]
     Active Substance: LOSARTAN POTASSIUM
     Indication: Product used for unknown indication
  3. BERBERINE COMPLEX [Concomitant]
     Indication: Product used for unknown indication
  4. RITUXAN [Concomitant]
     Active Substance: RITUXIMAB
     Indication: Product used for unknown indication
     Dosage: INTRAVENOUS SOLUTION
  5. VITAMIN D3 [Concomitant]
     Active Substance: CHOLECALCIFEROL
     Indication: Product used for unknown indication
  6. METFORMIN HYDROCHLORIDE [Concomitant]
     Active Substance: METFORMIN HYDROCHLORIDE
     Indication: Product used for unknown indication
  7. VITAMIN B12 [Concomitant]
     Active Substance: CYANOCOBALAMIN
     Indication: Product used for unknown indication
  8. ATORVASTATIN CALCIUM [Concomitant]
     Active Substance: ATORVASTATIN CALCIUM
     Indication: Product used for unknown indication
  9. ALIGN [Concomitant]
     Active Substance: BIFIDOBACTERIUM LONGUM SUBSP. INFANTIS
     Indication: Product used for unknown indication
  10. VITAMINS [Concomitant]
     Active Substance: VITAMINS
     Indication: Product used for unknown indication

REACTIONS (3)
  - Joint lock [Not Recovered/Not Resolved]
  - Muscle spasms [Recovered/Resolved]
  - Muscle disorder [Recovered/Resolved]

NARRATIVE: CASE EVENT DATE: 20220717
